FAERS Safety Report 12179623 (Version 1)
Quarter: 2016Q1

REPORT INFORMATION
  Report Type: Spontaneous
  Country: DE (occurrence: DE)
  Receive Date: 20160315
  Receipt Date: 20160315
  Transmission Date: 20160526
  Serious: Yes (Other)
  Sender: FDA-Public Use
  Company Number: DE-SUN PHARMACEUTICAL INDUSTRIES LTD-2016RR-112949

PATIENT

DRUGS (5)
  1. METHOHEXAL [Concomitant]
     Indication: ARRHYTHMIA
     Dosage: 71.25 MG/D, (23.75-0-47.5 MG/DAY)
     Route: 048
     Dates: start: 20150215, end: 20151111
  2. CITALOPRAM [Suspect]
     Active Substance: CITALOPRAM HYDROBROMIDE
     Indication: DEPRESSION
     Dosage: 10 MG, DAILY
     Route: 048
     Dates: start: 20150215, end: 20151111
  3. MIRTAZAPIN [Suspect]
     Active Substance: MIRTAZAPINE
     Indication: SLEEP DISORDER
     Dosage: 7.5 MG, DAILY
     Route: 048
     Dates: start: 20150215, end: 20151111
  4. TIANEURAX [Suspect]
     Active Substance: TIANEPTINE SODIUM
     Indication: DEPRESSION
     Dosage: 12.5 MG, DAILY
     Route: 048
     Dates: start: 20150215, end: 20151111
  5. FEMIBION [Concomitant]
     Active Substance: VITAMINS
     Indication: VITAMIN SUPPLEMENTATION
     Dosage: PROBABLY UNTL DELIVERY
     Route: 048

REACTIONS (2)
  - Polyhydramnios [Recovered/Resolved]
  - Gestational diabetes [Recovered/Resolved]
